FAERS Safety Report 9986743 (Version 7)
Quarter: 2015Q4

REPORT INFORMATION
  Report Type: Other
  Country: NO (occurrence: NO)
  Receive Date: 20140307
  Receipt Date: 20151223
  Transmission Date: 20160305
  Serious: Yes (Hospitalization, Other)
  Sender: FDA-Public Use
  Company Number: NO-ASTELLAS-2014EU001871

PATIENT
  Age: 86 Year
  Sex: Male

DRUGS (6)
  1. XTANDI [Suspect]
     Active Substance: ENZALUTAMIDE
     Indication: PROSTATE CANCER
     Route: 048
     Dates: start: 20140114, end: 20140219
  2. ZOLADEX [Concomitant]
     Active Substance: GOSERELIN ACETATE
     Indication: PROSTATE CANCER
     Dosage: 10.8 MG, EVERY 3 MONTHS
     Route: 058
     Dates: start: 201306
  3. ZYTIGA [Concomitant]
     Active Substance: ABIRATERONE ACETATE
     Indication: PROSTATE CANCER
     Dosage: UNK UNK, UNKNOWN FREQ.
     Route: 065
     Dates: end: 201401
  4. ALBYL-E [Concomitant]
     Active Substance: ASPIRIN\MAGNESIUM OXIDE
     Indication: HYPERTENSION
     Route: 048
  5. PLAVIX [Concomitant]
     Active Substance: CLOPIDOGREL BISULFATE
     Indication: PRODUCT USED FOR UNKNOWN INDICATION
     Dosage: UNK UNK, UNKNOWN FREQ.
     Route: 065
     Dates: start: 201312
  6. NORVASC [Concomitant]
     Active Substance: AMLODIPINE BESYLATE
     Indication: PRODUCT USED FOR UNKNOWN INDICATION
     Route: 048

REACTIONS (20)
  - Urinary incontinence [Recovered/Resolved]
  - Vomiting [Recovered/Resolved]
  - Loss of consciousness [Recovered/Resolved]
  - Actinic keratosis [Unknown]
  - Mouth ulceration [Unknown]
  - General physical health deterioration [Recovering/Resolving]
  - Rash pruritic [Recovering/Resolving]
  - Oedema peripheral [Unknown]
  - Abdominal distension [Unknown]
  - Dizziness [Recovering/Resolving]
  - Drug hypersensitivity [Recovering/Resolving]
  - Dysphagia [Recovering/Resolving]
  - Nausea [Recovered/Resolved]
  - Syncope [Recovering/Resolving]
  - Ageusia [Recovering/Resolving]
  - Prostatic specific antigen increased [Unknown]
  - Dermatitis [Unknown]
  - Dermatitis allergic [Recovering/Resolving]
  - Decreased appetite [Recovering/Resolving]
  - Lip swelling [Recovering/Resolving]

NARRATIVE: CASE EVENT DATE: 20140210
